FAERS Safety Report 22194965 (Version 1)
Quarter: 2023Q2

REPORT INFORMATION
  Report Type: Spontaneous
  Country: IT (occurrence: IT)
  Receive Date: 20230411
  Receipt Date: 20230411
  Transmission Date: 20230722
  Serious: Yes (Death, Other)
  Sender: FDA-Public Use
  Company Number: IT-AMGEN-ITASP2023061068

PATIENT

DRUGS (1)
  1. BLINCYTO [Suspect]
     Active Substance: BLINATUMOMAB
     Indication: Acute lymphocytic leukaemia
     Route: 065

REACTIONS (6)
  - Death [Fatal]
  - Transplantation complication [Fatal]
  - Acute lymphocytic leukaemia [Unknown]
  - Neurotoxicity [Unknown]
  - Cytokine release syndrome [Unknown]
  - Therapy non-responder [Unknown]
